FAERS Safety Report 23148301 (Version 1)
Quarter: 2023Q4

REPORT INFORMATION
  Report Type: Spontaneous
  Country: AR (occurrence: AR)
  Receive Date: 20231106
  Receipt Date: 20231106
  Transmission Date: 20240110
  Serious: Yes (Other)
  Sender: FDA-Public Use
  Company Number: AR-SANDOZ-SDZ2023AR048854

PATIENT
  Sex: Male

DRUGS (1)
  1. OMNITROPE [Suspect]
     Active Substance: SOMATROPIN
     Indication: Growth hormone deficiency
     Dosage: UNK
     Route: 065
     Dates: start: 20230314

REACTIONS (4)
  - Brain neoplasm [Unknown]
  - Hypopituitarism [Unknown]
  - Growth failure [Unknown]
  - Procedural complication [Unknown]
